FAERS Safety Report 11741733 (Version 1)
Quarter: 2015Q4

REPORT INFORMATION
  Report Type: Report from Study
  Country: US (occurrence: US)
  Receive Date: 20151116
  Receipt Date: 20151116
  Transmission Date: 20160304
  Serious: Yes (Other)
  Sender: FDA-Public Use
  Company Number: US-ROCHE-1658124

PATIENT

DRUGS (1)
  1. RITUXIMAB [Suspect]
     Active Substance: RITUXIMAB
     Indication: WALDENSTROM^S MACROGLOBULINAEMIA
     Route: 042

REACTIONS (21)
  - Angioedema [Unknown]
  - Neutropenia [Unknown]
  - Pruritus [Unknown]
  - Syncope [Unknown]
  - Infection [Unknown]
  - Hypotension [Unknown]
  - Arrhythmia [Unknown]
  - Chills [Unknown]
  - Pyrexia [Unknown]
  - Serum sickness [Unknown]
  - Back pain [Unknown]
  - Cerebrovascular accident [Unknown]
  - Chest pain [Unknown]
  - Diarrhoea [Unknown]
  - Anaphylactic reaction [Unknown]
  - Urticaria [Unknown]
  - Dyspnoea [Unknown]
  - Rash [Unknown]
  - Nausea [Unknown]
  - Vomiting [Unknown]
  - Hypogammaglobulinaemia [Unknown]
